FAERS Safety Report 19039812 (Version 1)
Quarter: 2021Q1

REPORT INFORMATION
  Report Type: Spontaneous
  Country: DE (occurrence: DE)
  Receive Date: 20210323
  Receipt Date: 20210323
  Transmission Date: 20210420
  Serious: Yes (Hospitalization)
  Sender: FDA-Public Use
  Company Number: DE-B.I. PHARMACEUTICALS,INC./RIDGEFIELD-2021-BI-090564

PATIENT
  Age: 82 Year
  Sex: Female

DRUGS (1)
  1. PRADAXA [Suspect]
     Active Substance: DABIGATRAN ETEXILATE MESYLATE
     Indication: ANTICOAGULANT THERAPY
     Dates: start: 20210313

REACTIONS (5)
  - Feeling cold [Recovering/Resolving]
  - Dysstasia [Recovering/Resolving]
  - Nausea [Recovering/Resolving]
  - Haemorrhage [Recovering/Resolving]
  - Dizziness [Recovering/Resolving]
